FAERS Safety Report 9973922 (Version 1)
Quarter: 2014Q1

REPORT INFORMATION
  Report Type: Report from Study
  Country: US (occurrence: US)
  Receive Date: 20140306
  Receipt Date: 20140306
  Transmission Date: 20141002
  Serious: No
  Sender: FDA-Public Use
  Company Number: US-ABBVIE-13P-163-1154863-00

PATIENT
  Age: 25 Year
  Sex: Female
  Weight: 59.02 kg

DRUGS (5)
  1. HUMIRA [Suspect]
     Indication: CROHN^S DISEASE
     Dosage: LOADING DOSE
     Dates: start: 20131004, end: 20131004
  2. VITAMIN B12 [Concomitant]
     Indication: VITAMIN B12 DEFICIENCY
  3. MULTIVITAMIN [Concomitant]
     Indication: VITAMIN SUPPLEMENTATION
  4. VITAMIN C [Concomitant]
     Indication: VITAMIN SUPPLEMENTATION
  5. PROBIOTIC [Concomitant]
     Indication: CROHN^S DISEASE

REACTIONS (2)
  - Injection site discomfort [Unknown]
  - Injection site haemorrhage [Recovered/Resolved with Sequelae]
